FAERS Safety Report 4640590-7 (Version None)
Quarter: 2005Q2

REPORT INFORMATION
  Report Type: 
  Country: None (occurrence: None)
  Receive Date: 20050321
  Receipt Date: 20040416
  Transmission Date: 20051028
  Serious: Yes (Other)
  Sender: FDA-Public Use
  Company Number: 2004-04-1146

PATIENT
  Sex: Male

DRUGS (3)
  1. PEG-INTRON [Suspect]
     Indication: HEPATITIS
     Dosage: 150 MCG QWK
     Dates: start: 20040401, end: 20040415
  2. REBETOL [Suspect]
     Indication: HEPATITIS
     Dosage: 1200 MG QD ORAL
     Route: 048
     Dates: start: 20040401, end: 20040415
  3. NEXIUM [Concomitant]

REACTIONS (6)
  - AFFECT LABILITY [None]
  - AGGRESSION [None]
  - ANOREXIA [None]
  - INSOMNIA [None]
  - SELF INJURIOUS BEHAVIOUR [None]
  - WEIGHT DECREASED [None]
